FAERS Safety Report 8790711 (Version 1)
Quarter: 2012Q4

REPORT INFORMATION
  Report Type: Spontaneous
  Country: US (occurrence: None)
  Receive Date: 20120912
  Receipt Date: 20120912
  Transmission Date: 20130627
  Serious: Yes (Hospitalization)
  Sender: FDA-Public Use
  Company Number: None

PATIENT
  Sex: Male
  Weight: 59.5 kg

DRUGS (1)
  1. LISINOPRIL [Suspect]
     Indication: HYPERTENSION
     Route: 048
     Dates: start: 20090128, end: 20120705

REACTIONS (8)
  - Angina unstable [None]
  - Alcohol withdrawal syndrome [None]
  - Anaphylactic reaction [None]
  - Abscess [None]
  - Urticaria [None]
  - Dizziness [None]
  - Urticaria [None]
  - Angioedema [None]
